FAERS Safety Report 6068366-7 (Version None)
Quarter: 2009Q1

REPORT INFORMATION
  Report Type: 
  Country: None (occurrence: None)
  Receive Date: 20090203
  Receipt Date: 20090122
  Transmission Date: 20090719
  Serious: Yes (Life-Threatening)
  Sender: FDA-Public Use
  Company Number: 1-17367233

PATIENT
  Age: 37 Year
  Sex: Female

DRUGS (2)
  1. SODIUM CHLORIDE [Suspect]
     Dosage: INTRAVENOUS DRIP
     Route: 041
  2. ORAL CONTRACEPTIVE [Concomitant]

REACTIONS (1)
  - ANAPHYLACTIC REACTION [None]
